FAERS Safety Report 25889619 (Version 1)
Quarter: 2025Q4

REPORT INFORMATION
  Report Type: Spontaneous
  Country: US (occurrence: US)
  Receive Date: 20251007
  Receipt Date: 20251007
  Transmission Date: 20260118
  Serious: Yes (Disabling, Other)
  Sender: MACLEODS
  Company Number: US-MACLEODS PHARMA-MAC2025055513

PATIENT

DRUGS (4)
  1. LEVOFLOXACIN [Suspect]
     Active Substance: LEVOFLOXACIN
     Indication: Secretion discharge
     Route: 048
     Dates: start: 20250923, end: 20250925
  2. LEVOFLOXACIN [Suspect]
     Active Substance: LEVOFLOXACIN
     Indication: Gastrointestinal disorder
  3. Blosana [Concomitant]
     Indication: Product used for unknown indication
     Route: 065
  4. VITAMINS [Concomitant]
     Active Substance: VITAMINS
     Indication: Product used for unknown indication
     Route: 065

REACTIONS (3)
  - Diplegia [Recovering/Resolving]
  - Gait disturbance [Recovering/Resolving]
  - Tendon injury [Recovering/Resolving]

NARRATIVE: CASE EVENT DATE: 20250925
